FAERS Safety Report 14521360 (Version 1)
Quarter: 2018Q1

REPORT INFORMATION
  Report Type: Spontaneous
  Country: US (occurrence: US)
  Receive Date: 20180212
  Receipt Date: 20180212
  Transmission Date: 20180509
  Serious: Yes (Other)
  Sender: FDA-Public Use
  Company Number: US-PFIZER INC-2018051899

PATIENT
  Age: 79 Year
  Sex: Female

DRUGS (1)
  1. REVATIO [Suspect]
     Active Substance: SILDENAFIL CITRATE
     Dosage: 60 MG, DAILY (20 MG 3 TABLETS DAILY)

REACTIONS (2)
  - Coeliac disease [Unknown]
  - Weight decreased [Unknown]
